FAERS Safety Report 5199628-3 (Version None)
Quarter: 2007Q1

REPORT INFORMATION
  Report Type: 
  Country: None (occurrence: None)
  Receive Date: 20070102
  Receipt Date: 20070102
  Transmission Date: 20070707
  Serious: Yes (Other)
  Sender: FDA-Public Use
  Company Number: None

PATIENT
  Age: 86 Year
  Sex: Female
  Weight: 68.04 kg

DRUGS (12)
  1. DANAZOL [Suspect]
     Indication: ANAEMIA HAEMOLYTIC AUTOIMMUNE
     Dosage: 200 MG BID PO
     Route: 048
     Dates: start: 20061107, end: 20061113
  2. SULFASALAZINE [Concomitant]
  3. ATENOLOL [Concomitant]
  4. ESOMEPRAZOLE MAGNESIUM [Concomitant]
  5. FOLIC ACID [Concomitant]
  6. DORZOLAMIDE HCL [Concomitant]
  7. LATANOPROST OPTH. SUSP [Concomitant]
  8. LEVOTHYROXINE SODIUM [Concomitant]
  9. RAMIPRIL [Concomitant]
  10. PREDNISONE TAB [Concomitant]
  11. METHYLPREDNISOLONE [Concomitant]
  12. TRAMADOL HCL [Concomitant]

REACTIONS (4)
  - ALANINE AMINOTRANSFERASE INCREASED [None]
  - ANAEMIA [None]
  - ASPARTATE AMINOTRANSFERASE INCREASED [None]
  - HYPONATRAEMIA [None]
